FAERS Safety Report 15823507 (Version 1)
Quarter: 2019Q1

REPORT INFORMATION
  Report Type: Spontaneous
  Country: NL (occurrence: NL)
  Receive Date: 20190114
  Receipt Date: 20190114
  Transmission Date: 20190417
  Serious: Yes (Hospitalization)
  Sender: FDA-Public Use
  Company Number: PHHY2018NL008796

PATIENT
  Age: 67 Year
  Sex: Female

DRUGS (8)
  1. OXYCODONE HYDROCHLORIDE. [Interacting]
     Active Substance: OXYCODONE HYDROCHLORIDE
     Indication: PAIN
     Dosage: 20 MG, QD
     Route: 065
     Dates: start: 20170828, end: 201709
  2. QUETIAPINE. [Suspect]
     Active Substance: QUETIAPINE
     Indication: SLEEP DISORDER
     Dosage: 200 MG, QD (IN THE EVENING)
     Route: 048
     Dates: start: 20170828
  3. TRANYLCYPROMINE [Interacting]
     Active Substance: TRANYLCYPROMINE
     Dosage: 30 MG, UNK (20 MG IN THE MORNING AND 10 MG IN THE AFTERNOON)
     Route: 048
  4. CLOBAZAM. [Concomitant]
     Active Substance: CLOBAZAM
     Indication: SUPPORTIVE CARE
     Dosage: 1 MG, QD
     Route: 048
  5. QUETIAPINE. [Concomitant]
     Active Substance: QUETIAPINE
     Indication: SLEEP DISORDER
     Dosage: 200 MG, QD (IN THE EVENING)
     Route: 048
     Dates: start: 20170828
  6. KERATIN [Concomitant]
     Active Substance: KERATIN
     Indication: PRODUCT USED FOR UNKNOWN INDICATION
     Route: 065
  7. OXYCODONE HYDROCHLORIDE. [Interacting]
     Active Substance: OXYCODONE HYDROCHLORIDE
     Dosage: 5 MG, UNK
     Route: 065
     Dates: start: 201709
  8. TRANYLCYPROMINE [Interacting]
     Active Substance: TRANYLCYPROMINE
     Indication: DEPRESSION
     Dosage: 80 MG, QD (40 MG IN THE MORNING AND AFTERNOON)
     Route: 048

REACTIONS (13)
  - Dry mouth [Not Recovered/Not Resolved]
  - Drug interaction [Recovered/Resolved]
  - Depression [Recovered/Resolved]
  - Middle ear effusion [Not Recovered/Not Resolved]
  - Contraindicated product administered [Recovered/Resolved]
  - Fall [Recovered/Resolved]
  - Headache [Recovered/Resolved]
  - Restlessness [Not Recovered/Not Resolved]
  - Nerve compression [Unknown]
  - Tremor [Recovered/Resolved]
  - Ankle fracture [Recovered/Resolved]
  - Overdose [Recovered/Resolved]
  - Blood pressure fluctuation [Recovered/Resolved]

NARRATIVE: CASE EVENT DATE: 20170828
